FAERS Safety Report 6062829-6 (Version None)
Quarter: 2009Q1

REPORT INFORMATION
  Report Type: 
  Country: None (occurrence: None)
  Receive Date: 20090129
  Receipt Date: 20090116
  Transmission Date: 20090719
  Serious: Yes (Life-Threatening, Hospitalization, Disabling)
  Sender: FDA-Public Use
  Company Number: 2009AL000370

PATIENT
  Age: 34 Year
  Sex: Female

DRUGS (2)
  1. DICLOFENAC SODIUM [Suspect]
     Indication: MIGRAINE
     Dosage: 50 MG;QD;PO
     Route: 048
     Dates: start: 19980414
  2. VOLTAREN [Concomitant]

REACTIONS (2)
  - CEREBRAL INFARCTION [None]
  - CONVULSION [None]
